FAERS Safety Report 23958876 (Version 6)
Quarter: 2024Q3

REPORT INFORMATION
  Report Type: Spontaneous
  Country: US (occurrence: US)
  Receive Date: 20240611
  Receipt Date: 20240730
  Transmission Date: 20241016
  Serious: Yes (Hospitalization)
  Sender: SANOFI AVENTIS
  Company Number: US-SA-SAC20240607000238

PATIENT
  Age: 66 Year
  Sex: Female

DRUGS (10)
  1. DUPIXENT [Suspect]
     Active Substance: DUPILUMAB
     Indication: Dermatitis atopic
     Dosage: 300 MG, QOW
     Route: 058
     Dates: start: 202403
  2. ONDANSETRON [Concomitant]
     Active Substance: ONDANSETRON
     Dosage: UNK
  3. AMLODIPINE [Concomitant]
     Active Substance: AMLODIPINE BESYLATE
     Dosage: UNK
  4. BUTALBITAL [Concomitant]
     Active Substance: BUTALBITAL
     Dosage: UNK
  5. MUPIROCIN [Concomitant]
     Active Substance: MUPIROCIN
     Dosage: UNK
  6. ROSUVASTATIN [Concomitant]
     Active Substance: ROSUVASTATIN\ROSUVASTATIN CALCIUM
     Dosage: UNK
  7. VALSARTAN [Concomitant]
     Active Substance: VALSARTAN
     Dosage: UNK
  8. XARELTO [Concomitant]
     Active Substance: RIVAROXABAN
     Dosage: UNK
  9. DIVALPROEX SODIUM [Concomitant]
     Active Substance: DIVALPROEX SODIUM
     Dosage: UNK
  10. CLOBETASOL PROPIONATE [Concomitant]
     Active Substance: CLOBETASOL PROPIONATE
     Dosage: UNK

REACTIONS (18)
  - Pyrexia [Not Recovered/Not Resolved]
  - Vomiting [Not Recovered/Not Resolved]
  - Illness [Recovering/Resolving]
  - Joint swelling [Not Recovered/Not Resolved]
  - Visual impairment [Not Recovered/Not Resolved]
  - Dry skin [Unknown]
  - Arthritis [Unknown]
  - Eye disorder [Unknown]
  - Condition aggravated [Unknown]
  - Stress [Unknown]
  - Initial insomnia [Unknown]
  - Pollakiuria [Unknown]
  - Vision blurred [Recovered/Resolved]
  - Dermatitis atopic [Unknown]
  - Arthralgia [Not Recovered/Not Resolved]
  - Eye pruritus [Unknown]
  - Injection site erythema [Unknown]
  - Pain [Unknown]

NARRATIVE: CASE EVENT DATE: 20240101
